FAERS Safety Report 17365559 (Version 2)
Quarter: 2020Q1

REPORT INFORMATION
  Report Type: Spontaneous
  Country: RU (occurrence: RU)
  Receive Date: 20200204
  Receipt Date: 20200217
  Transmission Date: 20200409
  Serious: Yes (Other)
  Sender: FDA-Public Use
  Company Number: RU-TEVA-2020-RU-1178833

PATIENT
  Age: 20 Year
  Sex: Female

DRUGS (2)
  1. DROSPIRENONE W/ETHINYLESTRADIOL [Suspect]
     Active Substance: DROSPIRENONE\ETHINYL ESTRADIOL
     Indication: PREMENSTRUAL SYNDROME
     Dosage: DOSE: 3/0.030MG
     Route: 048
  2. DROSPIRENONE W/ETHINYLESTRADIOL [Suspect]
     Active Substance: DROSPIRENONE\ETHINYL ESTRADIOL
     Indication: DYSMENORRHOEA

REACTIONS (1)
  - Atrioventricular block second degree [Unknown]
